FAERS Safety Report 8132684-9 (Version None)
Quarter: 2012Q1

REPORT INFORMATION
  Report Type: 
  Country: None (occurrence: None)
  Receive Date: 20120213
  Receipt Date: 20120206
  Transmission Date: 20120608
  Serious: Yes (Hospitalization, Other)
  Sender: FDA-Public Use
  Company Number: US-PFIZER INC-2012026391

PATIENT
  Sex: Male

DRUGS (15)
  1. ZANTAC [Concomitant]
     Dosage: 150 MG, 2X/DAY
     Route: 042
     Dates: start: 20090907, end: 20090911
  2. DILANTIN [Suspect]
     Dosage: 1000 MG, 1X/DAY
     Route: 042
     Dates: start: 20091125, end: 20091125
  3. AMLODIPINE [Concomitant]
     Dosage: 5 MG, 2X/DAY
     Route: 048
     Dates: start: 20090910, end: 20090928
  4. ENALAPRIL [Concomitant]
     Dosage: 5 MG, 2X/DAY
     Route: 048
     Dates: start: 20090910, end: 20090910
  5. ACETAMINOPHEN [Concomitant]
     Indication: PYREXIA
     Dosage: 325 MG, AS NEEDED
     Route: 048
     Dates: start: 20090907, end: 20090908
  6. DILANTIN [Suspect]
     Indication: CONVULSION PROPHYLAXIS
     Dosage: 900 MG, 1X/DAY
     Route: 042
     Dates: start: 20090907, end: 20090907
  7. HEPARIN [Concomitant]
     Dosage: 5000 UNITS EVERY 8 HOURS
     Route: 058
     Dates: start: 20090909, end: 20090911
  8. CHLORHEXIDINE [Concomitant]
     Dosage: 15 ML, 4X/DAY
     Route: 048
     Dates: start: 20090906, end: 20091002
  9. CLINDAMYCIN [Concomitant]
     Dosage: 600 MG, 3X/DAY
     Route: 042
     Dates: start: 20090906, end: 20091002
  10. ENALAPRIL [Concomitant]
     Dosage: 5 MG, 1X/DAY
     Route: 048
     Dates: start: 20090911, end: 20090916
  11. DILANTIN-125 [Suspect]
     Indication: CONVULSION PROPHYLAXIS
     Dosage: 100 MG, 3X/DAY
     Route: 048
     Dates: start: 20090907, end: 20090909
  12. DILANTIN-125 [Suspect]
     Dosage: 200 MG, 2X/DAY
     Route: 048
     Dates: start: 20090909, end: 20090911
  13. ZANTAC [Concomitant]
     Dosage: 50 MG, 3X/DAY
     Route: 042
     Dates: start: 20090906, end: 20090907
  14. LASIX [Concomitant]
     Dosage: 5 MG, 1X/DAY
     Route: 042
     Dates: start: 20090907, end: 20090907
  15. ACETAMINOPHEN [Concomitant]
     Dosage: 650 MG, AS NEEDED
     Route: 048
     Dates: start: 20090910, end: 20090928

REACTIONS (1)
  - STEVENS-JOHNSON SYNDROME [None]
